FAERS Safety Report 4596170-5 (Version None)
Quarter: 2005Q1

REPORT INFORMATION
  Report Type: 
  Country: None (occurrence: None)
  Receive Date: 20050302
  Receipt Date: 20050218
  Transmission Date: 20050727
  Serious: Yes (Hospitalization)
  Sender: FDA-Public Use
  Company Number: JP-ROCHE-396370

PATIENT
  Age: 91 Year
  Sex: Male

DRUGS (1)
  1. ROCEPHIN [Suspect]
     Indication: BRONCHITIS
     Route: 041
     Dates: start: 20050122, end: 20050122

REACTIONS (2)
  - FACE OEDEMA [None]
  - LARYNGEAL STENOSIS [None]
